FAERS Safety Report 14154072 (Version 1)
Quarter: 2017Q4

REPORT INFORMATION
  Report Type: Spontaneous
  Country: US (occurrence: US)
  Receive Date: 20171102
  Receipt Date: 20171102
  Transmission Date: 20180321
  Serious: No
  Sender: FDA-Public Use
  Company Number: US-MYLANLABS-2017M1069370

PATIENT
  Sex: Female

DRUGS (1)
  1. COLYTE WITH FLAVOR PACKS [Suspect]
     Active Substance: POLYETHYLENE GLYCOL 3350\POTASSIUM CHLORIDE\SODIUM BICARBONATE\SODIUM CHLORIDE\SODIUM SULFATE
     Indication: COLONOSCOPY
     Dosage: UNK

REACTIONS (3)
  - Malaise [Unknown]
  - Abdominal pain [Unknown]
  - Post procedural complication [None]
